FAERS Safety Report 14830001 (Version 1)
Quarter: 2018Q2

REPORT INFORMATION
  Report Type: Spontaneous
  Country: US (occurrence: US)
  Receive Date: 20180430
  Receipt Date: 20180430
  Transmission Date: 20180711
  Serious: Yes (Other)
  Sender: FDA-Public Use
  Company Number: US-PFIZER INC-2018169708

PATIENT
  Age: 68 Year
  Sex: Female

DRUGS (2)
  1. ALPRAZOLAM. [Suspect]
     Active Substance: ALPRAZOLAM
     Dosage: 0.5 MG, UNK
  2. ALPRAZOLAM. [Suspect]
     Active Substance: ALPRAZOLAM
     Indication: ESSENTIAL TREMOR
     Dosage: 0.25 MG, UNK

REACTIONS (3)
  - Breast cancer [Unknown]
  - Diabetes mellitus [Unknown]
  - Drug ineffective [Unknown]
